FAERS Safety Report 9207261 (Version 1)
Quarter: 2013Q1

REPORT INFORMATION
  Report Type: Spontaneous
  Country: US (occurrence: None)
  Receive Date: 20120718
  Receipt Date: 20120718
  Transmission Date: 20140127
  Serious: Yes (Hospitalization)
  Sender: FDA-Public Use
  Company Number: 163-50794-12022451

PATIENT
  Age: 85 Year
  Sex: Female
  Weight: 145 kg

DRUGS (3)
  1. VIDAZA [Suspect]
     Indication: MYELODYSPLASTIC SYNDROME
     Dosage: X 7 DAYS
     Route: 058
     Dates: start: 2010
  2. METOPROLOL (METOPROLOL) (UNKNOWN) [Concomitant]
  3. SIMVASTATIN [Concomitant]

REACTIONS (7)
  - Haemoglobin decreased [None]
  - Skin papilloma [None]
  - Skin haemorrhage [None]
  - Ecchymosis [None]
  - Fatigue [None]
  - Diarrhoea [None]
  - Constipation [None]
